FAERS Safety Report 20862660 (Version 1)
Quarter: 2022Q2

REPORT INFORMATION
  Report Type: Spontaneous
  Country: US (occurrence: None)
  Receive Date: 20220523
  Receipt Date: 20220523
  Transmission Date: 20220721
  Serious: Yes (Death)
  Sender: FDA-Public Use
  Company Number: None

PATIENT
  Age: 82 Year
  Sex: Female

DRUGS (15)
  1. LOKELMA [Suspect]
     Active Substance: SODIUM ZIRCONIUM CYCLOSILICATE
     Indication: Hyperkalaemia
     Dosage: FREQUENCY : DAILY;?
     Route: 048
     Dates: start: 20210823, end: 20220522
  2. BASAGLAR [Concomitant]
     Active Substance: INSULIN GLARGINE
  3. CLOPIDOGREL [Concomitant]
     Active Substance: CLOPIDOGREL BISULFATE
  4. FUROSEMIDE [Concomitant]
     Active Substance: FUROSEMIDE
  5. GABAPENTIN [Concomitant]
     Active Substance: GABAPENTIN
  6. ACETAMINOPHEN\HYDROCODONE [Concomitant]
     Active Substance: ACETAMINOPHEN\HYDROCODONE
  7. METFORMIN [Concomitant]
     Active Substance: METFORMIN HYDROCHLORIDE
  8. RANOLAZINE [Concomitant]
     Active Substance: RANOLAZINE
  9. VITAMIN B12 [Concomitant]
     Active Substance: CYANOCOBALAMIN
  10. FERROUS SULFATE [Concomitant]
     Active Substance: FERROUS SULFATE
  11. LEVOTHYROXINE [Concomitant]
     Active Substance: LEVOTHYROXINE
  12. NITROGLYCERIN [Concomitant]
     Active Substance: NITROGLYCERIN
  13. NITROSTAT [Concomitant]
     Active Substance: NITROGLYCERIN
  14. PRAVASTATIN [Concomitant]
     Active Substance: PRAVASTATIN
  15. VITAMIN D [Concomitant]
     Active Substance: VITAMIN D NOS

REACTIONS (1)
  - Death [None]

NARRATIVE: CASE EVENT DATE: 20220522
